FAERS Safety Report 7654311-7 (Version None)
Quarter: 2011Q3

REPORT INFORMATION
  Report Type: 
  Country: None (occurrence: None)
  Receive Date: 20110803
  Receipt Date: 20110725
  Transmission Date: 20111222
  Serious: Yes (Other)
  Sender: FDA-Public Use
  Company Number: US-BAYER-2011-039299

PATIENT
  Age: 18 Year
  Sex: Female
  Weight: 45.351 kg

DRUGS (2)
  1. YAZ [Suspect]
     Indication: PREMENSTRUAL SYNDROME
  2. YAZ [Suspect]
     Indication: ACNE
     Dosage: UNK
     Dates: start: 20090602, end: 20090915

REACTIONS (4)
  - GALLBLADDER DISORDER [None]
  - FEAR [None]
  - CHOLELITHIASIS [None]
  - CHOLECYSTITIS CHRONIC [None]
